FAERS Safety Report 5864840-4 (Version None)
Quarter: 2008Q3

REPORT INFORMATION
  Report Type: 
  Country: None (occurrence: None)
  Receive Date: 20080829
  Receipt Date: 20080829
  Transmission Date: 20090109
  Serious: Yes (Other)
  Sender: FDA-Public Use
  Company Number: A0745127A

PATIENT
  Age: 66 Year
  Sex: Female

DRUGS (7)
  1. ALLI [Suspect]
     Route: 048
     Dates: end: 20080820
  2. LUTEIN [Concomitant]
  3. THYROID MEDICATION [Concomitant]
     Dosage: 88MCG PER DAY
  4. LIPITOR [Concomitant]
  5. DITROPAN [Concomitant]
  6. GLUCOSAMINE CHONDROITIN [Concomitant]
  7. MULTI-VITAMIN [Concomitant]

REACTIONS (2)
  - ALANINE AMINOTRANSFERASE INCREASED [None]
  - BLOOD THYROID STIMULATING HORMONE DECREASED [None]
